FAERS Safety Report 24322498 (Version 10)
Quarter: 2025Q1

REPORT INFORMATION
  Report Type: Spontaneous
  Country: AR (occurrence: AR)
  Receive Date: 20240916
  Receipt Date: 20250331
  Transmission Date: 20250408
  Serious: Yes (Other)
  Sender: MYLAN
  Company Number: AR-MYLANLABS-2024M1061219

PATIENT
  Age: 16 Year
  Sex: Female

DRUGS (1)
  1. CLOZAPINE [Suspect]
     Active Substance: CLOZAPINE
     Indication: Product used for unknown indication

REACTIONS (4)
  - Leukopenia [Recovered/Resolved]
  - Neutropenia [Recovered/Resolved]
  - Haemoglobin decreased [Unknown]
  - Off label use [Unknown]

NARRATIVE: CASE EVENT DATE: 20230501
